FAERS Safety Report 6180777-8 (Version None)
Quarter: 2009Q2

REPORT INFORMATION
  Report Type: 
  Country: None (occurrence: None)
  Receive Date: 20090504
  Receipt Date: 20090427
  Transmission Date: 20091009
  Serious: Yes (Hospitalization, Other)
  Sender: FDA-Public Use
  Company Number: 2009SP004600

PATIENT
  Age: 24 Year
  Sex: Female

DRUGS (4)
  1. PEG-INTRON [Suspect]
     Indication: HEPATITIS C
     Dosage: 80 MCG; QW; SC
     Route: 058
     Dates: start: 20081114, end: 20090201
  2. PEG-INTRON [Suspect]
     Indication: HEPATITIS C
     Dosage: 80 MCG; QW; SC
     Route: 058
     Dates: start: 20090201
  3. REBETOL [Suspect]
     Indication: HEPATITIS C
     Dosage: 800 MG; QD; PO
     Route: 048
     Dates: start: 20081114, end: 20090201
  4. DEPO PROVERA /00115201/ [Concomitant]

REACTIONS (6)
  - BILE DUCT OBSTRUCTION [None]
  - BILIARY DYSKINESIA [None]
  - CHEST PAIN [None]
  - KIDNEY INFECTION [None]
  - PANCREATITIS [None]
  - RENAL DISORDER [None]
